FAERS Safety Report 23678750 (Version 1)
Quarter: 2024Q1

REPORT INFORMATION
  Report Type: Spontaneous
  Country: ES (occurrence: ES)
  Receive Date: 20240327
  Receipt Date: 20240327
  Transmission Date: 20240410
  Serious: Yes (Other)
  Sender: FDA-Public Use
  Company Number: ES-BAXTER-2024BAX015917

PATIENT
  Age: 52 Year
  Sex: Female

DRUGS (1)
  1. CALCIUM CHLORIDE\DEXTROSE\MAGNESIUM CHLORIDE\SODIUM CHLORIDE [Suspect]
     Active Substance: CALCIUM CHLORIDE\DEXTROSE\MAGNESIUM CHLORIDE\SODIUM CHLORIDE
     Dosage: 2 A DAY
     Route: 033

REACTIONS (4)
  - Peritonitis bacterial [Recovering/Resolving]
  - Peritoneal cloudy effluent [Unknown]
  - Abdominal pain [Unknown]
  - Infection [Unknown]

NARRATIVE: CASE EVENT DATE: 20240319
